FAERS Safety Report 12530924 (Version 1)
Quarter: 2016Q3

REPORT INFORMATION
  Report Type: Spontaneous
  Country: US (occurrence: US)
  Receive Date: 20160706
  Receipt Date: 20160706
  Transmission Date: 20161109
  Serious: Yes (Hospitalization)
  Sender: FDA-Public Use
  Company Number: US-ALLERGAN-1661866US

PATIENT
  Age: 32 Year
  Sex: Female

DRUGS (1)
  1. MESALAMINE UNK [Suspect]
     Active Substance: MESALAMINE
     Indication: COLITIS ULCERATIVE
     Dosage: 4 G, QD
     Route: 048

REACTIONS (2)
  - Pneumonitis [Recovered/Resolved]
  - Lung disorder [Recovered/Resolved]
